FAERS Safety Report 14280257 (Version 1)
Quarter: 2017Q4

REPORT INFORMATION
  Report Type: Spontaneous
  Country: US (occurrence: US)
  Receive Date: 20171212
  Receipt Date: 20171212
  Transmission Date: 20180321
  Serious: No
  Sender: FDA-Public Use
  Company Number: None

PATIENT
  Sex: Female

DRUGS (2)
  1. CARVEDIOL [Suspect]
     Active Substance: CARVEDILOL
  2. CLONIDINE. [Suspect]
     Active Substance: CLONIDINE

REACTIONS (3)
  - Fatigue [None]
  - Dry skin [None]
  - Pruritus [None]
